FAERS Safety Report 4970127-4 (Version None)
Quarter: 2006Q2

REPORT INFORMATION
  Report Type: 
  Country: None (occurrence: None)
  Receive Date: 20060406
  Receipt Date: 20060329
  Transmission Date: 20061013
  Serious: Yes (Other)
  Sender: FDA-Public Use
  Company Number: 001-0981-M0008013

PATIENT
  Age: 68 Year
  Sex: Male

DRUGS (13)
  1. ATORVASTATIN CALCIUM [Suspect]
     Indication: ARTERIOSCLEROSIS CORONARY ARTERY
     Dosage: 20 MG (DAILY),
     Dates: start: 19950101, end: 19970101
  2. ATORVASTATIN CALCIUM [Suspect]
     Indication: CORONARY ARTERY SURGERY
     Dosage: 20 MG (DAILY),
     Dates: start: 19950101, end: 19970101
  3. ATORVASTATIN CALCIUM [Suspect]
     Indication: PERIPHERAL VASCULAR DISORDER
     Dosage: 20 MG (DAILY),
     Dates: start: 19950101, end: 19970101
  4. ZOCOR [Suspect]
     Indication: ARTERIOSCLEROSIS CORONARY ARTERY
     Dosage: 20 MG (DAILY),
     Dates: start: 19970101
  5. ZOCOR [Suspect]
     Indication: CORONARY ARTERY SURGERY
     Dosage: 20 MG (DAILY),
     Dates: start: 19970101
  6. NEURONTIN [Concomitant]
  7. RANITIDINE [Concomitant]
  8. ALLEGRA [Concomitant]
  9. PLETAL (CILOSTAZOL) [Concomitant]
  10. NAPROSYN [Concomitant]
  11. PROSCAR [Concomitant]
  12. VERAPAMIL [Concomitant]
  13. INDERAL [Concomitant]

REACTIONS (8)
  - ABNORMAL DREAMS [None]
  - ANGIOPLASTY [None]
  - ARTHRALGIA [None]
  - EPICONDYLITIS [None]
  - MIDDLE INSOMNIA [None]
  - MYALGIA [None]
  - NIGHTMARE [None]
  - SEASONAL ALLERGY [None]
